FAERS Safety Report 8439055-6 (Version None)
Quarter: 2012Q2

REPORT INFORMATION
  Report Type: 
  Country: None (occurrence: None)
  Receive Date: 20120615
  Receipt Date: 20120605
  Transmission Date: 20120825
  Serious: Yes (Other)
  Sender: FDA-Public Use
  Company Number: JP-PFIZER INC-2012136986

PATIENT

DRUGS (2)
  1. BEPRIDIL [Suspect]
     Indication: PRODUCT USED FOR UNKNOWN INDICATION
     Dosage: UNK
     Route: 065
  2. AMIODARONE HYDROCHLORIDE [Suspect]
     Dosage: 100 MG, UNK
     Route: 065

REACTIONS (4)
  - CARDIAC ARREST [None]
  - SICK SINUS SYNDROME [None]
  - SINUS ARREST [None]
  - MEDICAL DEVICE COMPLICATION [None]
